FAERS Safety Report 7304410-4 (Version None)
Quarter: 2011Q1

REPORT INFORMATION
  Report Type: 
  Country: None (occurrence: None)
  Receive Date: 20110221
  Receipt Date: 20110215
  Transmission Date: 20110831
  Serious: Yes (Hospitalization)
  Sender: FDA-Public Use
  Company Number: GB-AMGEN-GBRCT2011008766

PATIENT
  Age: 58 Year
  Sex: Male

DRUGS (7)
  1. FERROUS SULFATE TAB [Concomitant]
     Indication: ANAEMIA
     Dosage: 200 MG, TID
  2. SENNA                              /00571901/ [Concomitant]
     Indication: CONSTIPATION
     Dosage: UNK UNK, QHS
     Dates: start: 20110119
  3. DOCUSATE SODIUM [Concomitant]
     Indication: CONSTIPATION
     Dosage: UNK UNK, PRN
     Dates: start: 20110119
  4. EPIRUBICIN [Concomitant]
     Dosage: UNK
     Dates: start: 20110119
  5. OXALIPLATIN [Concomitant]
     Dosage: UNK
     Dates: start: 20110119
  6. CAPECITABINE [Concomitant]
     Dosage: UNK
     Dates: start: 20110119
  7. PANITUMUMAB [Suspect]
     Indication: GASTRIC CANCER
     Dosage: UNK
     Dates: start: 20110119

REACTIONS (1)
  - FEBRILE NEUTROPENIA [None]
